FAERS Safety Report 23135395 (Version 3)
Quarter: 2023Q4

REPORT INFORMATION
  Report Type: Spontaneous
  Country: JP (occurrence: JP)
  Receive Date: 20231101
  Receipt Date: 20231222
  Transmission Date: 20240109
  Serious: Yes (Death, Hospitalization, Other)
  Sender: FDA-Public Use
  Company Number: JP-BAYER-2023A151132

PATIENT
  Age: 69 Year
  Sex: Male

DRUGS (7)
  1. NEXAVAR [Suspect]
     Active Substance: SORAFENIB
     Indication: Renal cell carcinoma
     Dosage: UNK
     Route: 048
     Dates: end: 20231023
  2. NEXAVAR [Suspect]
     Active Substance: SORAFENIB
     Indication: Hepatocellular carcinoma
  3. ASPIRIN [Concomitant]
     Active Substance: ASPIRIN
     Dosage: 1 DF, QD IN THE MORNING
     Dates: start: 20190212, end: 20231024
  4. ADALAT CC [Concomitant]
     Active Substance: NIFEDIPINE
     Dosage: 2 DF, QD
     Dates: start: 20210623, end: 20231024
  5. AZILSARTAN KAMEDOXOMIL [Concomitant]
     Active Substance: AZILSARTAN KAMEDOXOMIL
     Dosage: 1 DF, QD, IN THE MORNING
     Dates: start: 20210126, end: 20231024
  6. JARDIANCE [Concomitant]
     Active Substance: EMPAGLIFLOZIN
     Indication: Type 2 diabetes mellitus
     Dosage: 1 DF, QD, IN THE MORNING
     Dates: start: 20210714, end: 20231024
  7. APIDRA [Concomitant]
     Active Substance: INSULIN GLULISINE
     Indication: Type 2 diabetes mellitus
     Dosage: 2 UNITS EACH JUST BEFORE AND JUST BEFORE BREAKFAST AND LUNCH
     Dates: start: 20210714, end: 20231024

REACTIONS (4)
  - Cerebral infarction [Fatal]
  - Respiratory arrest [None]
  - Dysarthria [None]
  - Decreased appetite [None]

NARRATIVE: CASE EVENT DATE: 20231001
